FAERS Safety Report 8098779-3 (Version None)
Quarter: 2012Q1

REPORT INFORMATION
  Report Type: 
  Country: None (occurrence: None)
  Receive Date: 20120131
  Receipt Date: 20120125
  Transmission Date: 20120608
  Serious: No
  Sender: FDA-Public Use
  Company Number: US-BAYER-2012-008861

PATIENT
  Age: 48 Year
  Sex: Female
  Weight: 49 kg

DRUGS (1)
  1. ALEVE (CAPLET) [Suspect]
     Indication: MYALGIA
     Dosage: 1 DF, TID
     Route: 048
     Dates: start: 20111228, end: 20120118

REACTIONS (2)
  - NO ADVERSE EVENT [None]
  - LIVER FUNCTION TEST ABNORMAL [None]
